FAERS Safety Report 8178518-8 (Version None)
Quarter: 2012Q1

REPORT INFORMATION
  Report Type: 
  Country: None (occurrence: None)
  Receive Date: 20120301
  Receipt Date: 20110812
  Transmission Date: 20120608
  Serious: Yes (Hospitalization, Other)
  Sender: FDA-Public Use
  Company Number: PHHY2011PK74591

PATIENT
  Age: 39 Year
  Sex: Female

DRUGS (10)
  1. CEFTAZIDIME [Suspect]
     Dosage: 1 G, UNK
  2. ASPIRIN [Suspect]
     Dosage: 75 MG, QD
  3. DIGOXIN [Suspect]
     Dosage: 0.25 MG, QD
  4. ATENOLOL [Suspect]
     Dosage: 25 MG, UNK
  5. PROGESTERONE [Suspect]
  6. METOPROLOL SUCCINATE [Suspect]
     Dosage: 25 MG, QID
  7. VANCOMYCIN [Suspect]
     Dosage: 1 G, UNK
  8. ENOXAPARIN [Suspect]
     Dosage: 40 MG, BID
  9. WARFARIN SODIUM [Suspect]
     Dosage: 2.5 MG, QD
  10. WARFARIN SODIUM [Suspect]
     Dosage: 5 MG, UNK

REACTIONS (7)
  - MEDIASTINAL HAEMORRHAGE [None]
  - WOUND HAEMORRHAGE [None]
  - MATERNAL EXPOSURE DURING PREGNANCY [None]
  - PREMATURE LABOUR [None]
  - PREMATURE RUPTURE OF MEMBRANES [None]
  - FOETAL GROWTH RESTRICTION [None]
  - PULMONARY ARTERIAL PRESSURE DECREASED [None]
